FAERS Safety Report 20081943 (Version 1)
Quarter: 2021Q4

REPORT INFORMATION
  Report Type: Spontaneous
  Country: IT (occurrence: IT)
  Receive Date: 20211117
  Receipt Date: 20211117
  Transmission Date: 20220304
  Serious: Yes (Death)
  Sender: FDA-Public Use
  Company Number: IT-GE HEALTHCARE-2021CSU005692

PATIENT

DRUGS (2)
  1. OMNIPAQUE [Suspect]
     Active Substance: IOHEXOL
     Indication: Diagnostic procedure
     Dosage: UNK, SINGLE
     Route: 065
     Dates: start: 20211111, end: 20211111
  2. OMNIPAQUE [Suspect]
     Active Substance: IOHEXOL
     Indication: Cancer staging

REACTIONS (1)
  - Death [Fatal]

NARRATIVE: CASE EVENT DATE: 20211111
